FAERS Safety Report 12401325 (Version 1)
Quarter: 2016Q2

REPORT INFORMATION
  Report Type: Spontaneous
  Country: US (occurrence: US)
  Receive Date: 20160525
  Receipt Date: 20160525
  Transmission Date: 20160815
  Serious: No
  Sender: FDA-Public Use
  Company Number: US-VERTEX PHARMACEUTICALS-2016-003317

PATIENT
  Age: 18 Year
  Sex: Male

DRUGS (9)
  1. COMPLETE [Concomitant]
     Active Substance: CALCIUM CARBONATE\FAMOTIDINE\MAGNESIUM HYDROXIDE
  2. PULMOZYME [Concomitant]
     Active Substance: DORNASE ALFA
  3. ORKAMBI [Suspect]
     Active Substance: IVACAFTOR\LUMACAFTOR
     Dosage: HALF DOSE
     Route: 048
  4. ALBUTEROL. [Concomitant]
     Active Substance: ALBUTEROL
  5. CAYSTON [Concomitant]
     Active Substance: AZTREONAM
  6. ORKAMBI [Suspect]
     Active Substance: IVACAFTOR\LUMACAFTOR
     Indication: CYSTIC FIBROSIS
     Dosage: 400-250 MG, BID
     Route: 048
     Dates: start: 20160303
  7. ORKAMBI [Suspect]
     Active Substance: IVACAFTOR\LUMACAFTOR
     Dosage: 2 DF, BID
     Route: 048
  8. SODIUM CHLORIDE. [Concomitant]
     Active Substance: SODIUM CHLORIDE
  9. TOBI PODHLER [Concomitant]

REACTIONS (1)
  - Underdose [Unknown]

NARRATIVE: CASE EVENT DATE: 201605
